FAERS Safety Report 17885013 (Version 1)
Quarter: 2020Q2

REPORT INFORMATION
  Report Type: Spontaneous
  Country: US (occurrence: US)
  Receive Date: 20200611
  Receipt Date: 20200611
  Transmission Date: 20200714
  Serious: Yes (Other)
  Sender: FDA-Public Use
  Company Number: None

PATIENT
  Age: 36 Year
  Sex: Male
  Weight: 77.5 kg

DRUGS (12)
  1. REMDESIVIR. [Suspect]
     Active Substance: REMDESIVIR
     Indication: COVID-19
     Dosage: ?          OTHER FREQUENCY:ONCE;?
     Route: 042
  2. METHYLPREDNISOLONE 125MG IV Q8H [Concomitant]
     Dates: start: 20200604
  3. THIAMINE 100MG IV DAILY [Concomitant]
     Dates: start: 20200605
  4. ENOXAPARIN 100MG SC [Concomitant]
     Dates: start: 20200606
  5. ZITRHROMAX 500MG IV [Concomitant]
     Dates: start: 20200604, end: 20200607
  6. ZINC SULFATE 220MG PO DAILY [Concomitant]
     Dates: start: 20200606
  7. LIDOCAINE 5% PATCH [Concomitant]
     Active Substance: LIDOCAINE
     Dates: start: 20200606
  8. ACETAMINOPHEN 650MG ORAL Q6H PRN [Concomitant]
     Dates: start: 20200606
  9. MORPHINE 1MG IV Q8H PRN [Concomitant]
     Dates: start: 20200606, end: 20200610
  10. ASCORBIC ACID 150MG ORAL [Concomitant]
     Dates: start: 20200605
  11. FAMOTIDINE 20MG IV DAILY [Concomitant]
     Dates: start: 20200604
  12. CYCYLCOBENZAPRINE 10MG ORAL TID PRN [Concomitant]
     Dates: start: 20200606, end: 20200608

REACTIONS (2)
  - Ventricular tachycardia [None]
  - Back pain [None]

NARRATIVE: CASE EVENT DATE: 20200607
